FAERS Safety Report 6750252-8 (Version None)
Quarter: 2010Q2

REPORT INFORMATION
  Report Type: 
  Country: None (occurrence: None)
  Receive Date: 20100601
  Receipt Date: 20100521
  Transmission Date: 20101027
  Serious: Yes (Other)
  Sender: FDA-Public Use
  Company Number: US-BAXTER-2010BH012662

PATIENT
  Age: 41 Year
  Sex: Male
  Weight: 122 kg

DRUGS (1)
  1. DURAMORPH PF [Suspect]
     Indication: PAIN
     Route: 037
     Dates: start: 20051116

REACTIONS (1)
  - PAIN [None]
